FAERS Safety Report 4984039-3 (Version None)
Quarter: 2006Q1

REPORT INFORMATION
  Report Type: 
  Country: None (occurrence: None)
  Receive Date: 20060301
  Receipt Date: 20051017
  Transmission Date: 20060701
  Serious: No
  Sender: FDA-Public Use
  Company Number: S05-USA-04720-01

PATIENT
  Age: 80 Year
  Sex: Female

DRUGS (6)
  1. NAMENDA [Suspect]
     Indication: DEMENTIA ALZHEIMER'S TYPE
     Dosage: 5 MG BID PO
     Route: 048
     Dates: start: 20051012
  2. NAMENDA [Suspect]
     Indication: DEMENTIA ALZHEIMER'S TYPE
     Dosage: 5 MG QD PO
     Route: 048
     Dates: start: 20051005, end: 20051011
  3. ARICEPT [Concomitant]
  4. SEROQUEL [Concomitant]
  5. ANTIHYPERTENSIVE MEDICATION (NOS) [Concomitant]
  6. BLOOD THINNER (NOS) [Concomitant]

REACTIONS (3)
  - ANXIETY [None]
  - INSOMNIA [None]
  - RESTLESSNESS [None]
